FAERS Safety Report 25954315 (Version 1)
Quarter: 2025Q4

REPORT INFORMATION
  Report Type: Spontaneous
  Country: US (occurrence: US)
  Receive Date: 20251023
  Receipt Date: 20251023
  Transmission Date: 20260118
  Serious: Yes (Other)
  Sender: ABBVIE
  Company Number: US-ABBVIE-6512380

PATIENT
  Age: 62 Year
  Sex: Female

DRUGS (1)
  1. REFRESH CELLUVISC [Suspect]
     Active Substance: CARBOXYMETHYLCELLULOSE SODIUM
     Indication: Dry eye
     Dosage: SOLUTION
     Route: 047
     Dates: start: 202505, end: 20251013

REACTIONS (4)
  - Blindness [Recovering/Resolving]
  - Corneal abrasion [Recovering/Resolving]
  - Eye pain [Not Recovered/Not Resolved]
  - Vision blurred [Recovering/Resolving]

NARRATIVE: CASE EVENT DATE: 20251013
